FAERS Safety Report 8531314 (Version 2)
Quarter: 2012Q4

REPORT INFORMATION
  Report Type: 
  Country: US (occurrence: US)
  Receive Date: 20120426
  Receipt Date: 20121019
  Transmission Date: 20130627
  Serious: Yes (Other)
  Sender: FDA-Public Use
  Company Number: US-BAYER-2012-039681

PATIENT
  Age: 23 Year
  Sex: Female
  Weight: 81.63 kg

DRUGS (7)
  1. YAZ [Suspect]
     Indication: ACNE
     Dosage: UNK
     Dates: start: 200803, end: 201004
  2. YAZ [Suspect]
     Indication: PREMENSTRUAL SYNDROME
  3. YAZ [Suspect]
     Indication: CONTRACEPTION
  4. LEVOTHYROXINE [Concomitant]
     Indication: THYROID DISORDER
     Dosage: 0.05 mg,daily
     Dates: start: 1998
  5. ALBUTEROL [Concomitant]
     Route: 045
  6. RANITIDINE HYDROCHLORIDE [Concomitant]
     Indication: GASTRIC DISORDER
     Dosage: 300 mg, daily
     Route: 048
  7. MONTELUKAST [Concomitant]
     Dosage: 10 mg, daily

REACTIONS (3)
  - Cholelithiasis [None]
  - Injury [None]
  - Pain [None]
